FAERS Safety Report 6590444-4 (Version None)
Quarter: 2010Q1

REPORT INFORMATION
  Report Type: 
  Country: None (occurrence: None)
  Receive Date: 20100219
  Receipt Date: 20100210
  Transmission Date: 20100710
  Serious: Yes (Hospitalization)
  Sender: FDA-Public Use
  Company Number: DE-ROCHE-681018

PATIENT
  Sex: Male
  Weight: 64 kg

DRUGS (7)
  1. PEG-INTERFERON A-2A (RO 25-8310) [Suspect]
     Route: 058
     Dates: start: 20090715, end: 20100112
  2. PEG-INTERFERON A-2A (RO 25-8310) [Suspect]
     Route: 058
     Dates: end: 20100123
  3. RIBAVIRIN [Suspect]
     Route: 048
     Dates: start: 20090715, end: 20100112
  4. RIBAVIRIN [Suspect]
     Route: 048
     Dates: end: 20100125
  5. CYMBALTA [Concomitant]
     Indication: DEPRESSED MOOD
     Route: 048
     Dates: start: 20091026
  6. FENISTIL(DIMETINDENE) [Concomitant]
     Route: 048
     Dates: start: 20091026
  7. DERMATOP [Concomitant]
     Indication: ECZEMA
     Route: 061
     Dates: start: 20091026

REACTIONS (4)
  - CHILLS [None]
  - GENERAL PHYSICAL HEALTH DETERIORATION [None]
  - PYREXIA [None]
  - SYNCOPE [None]
